FAERS Safety Report 10167104 (Version 1)
Quarter: 2014Q2

REPORT INFORMATION
  Report Type: Spontaneous
  Country: US (occurrence: None)
  Receive Date: 20140509
  Receipt Date: 20140509
  Transmission Date: 20141212
  Serious: Yes (Hospitalization)
  Sender: FDA-Public Use
  Company Number: None

PATIENT
  Age: 64 Year
  Sex: Male
  Weight: 62.6 kg

DRUGS (2)
  1. LINEZOLID [Suspect]
     Indication: DECUBITUS ULCER
     Route: 048
     Dates: start: 20140403, end: 20140501
  2. LINEZOLID [Suspect]
     Indication: OSTEOMYELITIS
     Route: 048
     Dates: start: 20140403, end: 20140501

REACTIONS (6)
  - Fatigue [None]
  - Haemoglobin decreased [None]
  - Thrombocytopenia [None]
  - Leukopenia [None]
  - Anaemia [None]
  - Bone marrow failure [None]
